FAERS Safety Report 7341823-9 (Version None)
Quarter: 2011Q1

REPORT INFORMATION
  Report Type: 
  Country: None (occurrence: None)
  Receive Date: 20110309
  Receipt Date: 20110228
  Transmission Date: 20110831
  Serious: Yes (Hospitalization)
  Sender: FDA-Public Use
  Company Number: US-ASTRAZENECA-2011SE02982

PATIENT
  Age: 64 Year
  Sex: Male

DRUGS (1)
  1. SYMBICORT [Suspect]
     Indication: EMPHYSEMA
     Dosage: 160/4.5 MCG
     Route: 055

REACTIONS (6)
  - ABDOMINAL OPERATION [None]
  - DRUG INEFFECTIVE [None]
  - DYSPNOEA [None]
  - DRUG DOSE OMISSION [None]
  - AORTIC SURGERY [None]
  - OXYGEN SUPPLEMENTATION [None]
